FAERS Safety Report 21569294 (Version 1)
Quarter: 2022Q4

REPORT INFORMATION
  Report Type: Spontaneous
  Country: US (occurrence: US)
  Receive Date: 20221109
  Receipt Date: 20221109
  Transmission Date: 20230112
  Serious: No
  Sender: FDA-Public Use
  Company Number: US-SA-SAC20221108000281

PATIENT
  Age: 72 Year
  Sex: Female

DRUGS (2)
  1. AUBAGIO [Suspect]
     Active Substance: TERIFLUNOMIDE
     Indication: Relapsing multiple sclerosis
     Dosage: UNK, QD
     Route: 048
     Dates: start: 20220120
  2. AMBIEN [Concomitant]
     Active Substance: ZOLPIDEM TARTRATE
     Indication: Sleep disorder
     Dosage: HALF A TABLET OF GENERIC AMBIEN AT NIGHT FOR SLEEP

REACTIONS (1)
  - Cognitive disorder [Unknown]
